FAERS Safety Report 18343671 (Version 1)
Quarter: 2020Q4

REPORT INFORMATION
  Report Type: Spontaneous
  Country: US (occurrence: US)
  Receive Date: 20201005
  Receipt Date: 20201005
  Transmission Date: 20210114
  Serious: No
  Sender: FDA-Public Use
  Company Number: US-ASTRAZENECA-2020SF26150

PATIENT
  Age: 695 Month
  Sex: Male
  Weight: 64.9 kg

DRUGS (1)
  1. DALIRESP [Suspect]
     Active Substance: ROFLUMILAST
     Indication: CHRONIC OBSTRUCTIVE PULMONARY DISEASE
     Route: 048
     Dates: start: 20200916

REACTIONS (8)
  - Weight decreased [Unknown]
  - Headache [Unknown]
  - Insomnia [Unknown]
  - Muscle spasms [Unknown]
  - Cardiac disorder [Unknown]
  - Dizziness [Unknown]
  - Diarrhoea [Unknown]
  - Back pain [Unknown]

NARRATIVE: CASE EVENT DATE: 202009
